FAERS Safety Report 10897746 (Version 1)
Quarter: 2015Q1

REPORT INFORMATION
  Report Type: Spontaneous
  Country: US (occurrence: None)
  Receive Date: 20150302
  Receipt Date: 20150302
  Transmission Date: 20150721
  Serious: Yes (Death)
  Sender: FDA-Public Use
  Company Number: None

PATIENT
  Age: 63 Year
  Sex: Female

DRUGS (9)
  1. SILENOR [Concomitant]
     Active Substance: DOXEPIN HYDROCHLORIDE
  2. POTASSIUM CHLORIDE (KLOR-CON) [Concomitant]
  3. LETAIRIS [Suspect]
     Active Substance: AMBRISENTAN
     Indication: PULMONARY HYPERTENSION
     Route: 048
     Dates: start: 201111, end: 201502
  4. SILDENAFIL (REVATIO) [Concomitant]
  5. FUROSEMIDE (LASIX) [Concomitant]
  6. DILITAZEM (CARDIZEM) [Concomitant]
  7. MTOLAZONE (ZAROXOLYN) [Concomitant]
  8. DIGOXIN (LANOXIN) [Concomitant]
  9. TREPROSTINIL (TYVASO) [Concomitant]

REACTIONS (8)
  - Oliguria [None]
  - Productive cough [None]
  - Dyspnoea [None]
  - Renal impairment [None]
  - Drug ineffective [None]
  - Asthenia [None]
  - Respiratory disorder [None]
  - Hypoxia [None]

NARRATIVE: CASE EVENT DATE: 20150215
